FAERS Safety Report 10056885 (Version 1)
Quarter: 2014Q2

REPORT INFORMATION
  Report Type: Spontaneous
  Country: US (occurrence: US)
  Receive Date: 20140403
  Receipt Date: 20140403
  Transmission Date: 20141212
  Serious: No
  Sender: FDA-Public Use
  Company Number: US-BAYER-2014-048042

PATIENT
  Age: 76 Year
  Sex: Female
  Weight: 77.1 kg

DRUGS (1)
  1. ALEVE TABLET [Suspect]
     Indication: ARTHRITIS
     Dosage: 1 DF, ONCE
     Route: 048
     Dates: start: 20140326, end: 20140326

REACTIONS (2)
  - Nocturia [Recovered/Resolved]
  - Heart rate increased [Recovered/Resolved]
